FAERS Safety Report 7108810 (Version 3)
Quarter: 2012Q4

REPORT INFORMATION
  Report Type: Spontaneous
  Country: JP (occurrence: None)
  Receive Date: 20090819
  Receipt Date: 20120810
  Transmission Date: 20130627
  Serious: Yes (Hospitalization, Other)
  Sender: FDA-Public Use
  Company Number: THYM-1001147

PATIENT
  Age: 52 Year
  Sex: Female
  Weight: 70 kg

DRUGS (17)
  1. THYMOGLOBULIN [Suspect]
     Indication: APLASTIC ANAEMIA
     Dosage: 225 MG, QD, INTRAVENOUS
     Route: 042
     Dates: start: 20090615, end: 20090619
  2. METHYLPREDNISOLONE [Concomitant]
  3. GLYCYRRHIZIN GLYCINE CYSTEINE COMBINED DRUG (GLYCYRRHIZIN GLYCINE CYSTEINE COMBINED DRUG) [Concomitant]
  4. LENOGRASTIM (LENOGRASTIM) [Concomitant]
  5. PREDNISOLONE (PREDNISOLONE) [Concomitant]
  6. PREDNISOLONE (PREDNISOLONE) [Concomitant]
  7. FILGRASTIM (FILGRASTIM) [Concomitant]
  8. CICLOSPORIN (CICLOSPORIN) [Concomitant]
  9. OLMESARTAN MEDOXOMIL (OLMESARTAN MEDOXOMIL) [Concomitant]
  10. ACICLOVIR (ACICLOVIR) [Concomitant]
  11. ALFACALCIDOL (ALFACALCIDOL) [Concomitant]
  12. MAGNESIUM OXIDE (MAGNESIUM OXIDE) [Concomitant]
  13. RED BLOOD CELLS (RED BLOOD CELLS) [Concomitant]
  14. ATORVASTATIN CALCIUM (ATORVASTATIN CALCIUM) [Concomitant]
  15. PLATELETS (PLATELETS) [Concomitant]
  16. TEPRENONE (TEPRENONE) [Concomitant]
  17. NIFEDIPINE (NIFEDIPINE) [Concomitant]

REACTIONS (9)
  - Serum sickness [None]
  - Bone pain [None]
  - Myalgia [None]
  - Herpes simplex [None]
  - Bacterial test positive [None]
  - Liver abscess [None]
  - Abscess fungal [None]
  - Cytomegalovirus infection [None]
  - Pneumocystis jiroveci pneumonia [None]
